FAERS Safety Report 15984852 (Version 1)
Quarter: 2019Q1

REPORT INFORMATION
  Report Type: Spontaneous
  Country: US (occurrence: US)
  Receive Date: 20190219
  Receipt Date: 20190219
  Transmission Date: 20190418
  Serious: Yes (Life-Threatening, Hospitalization)
  Sender: FDA-Public Use
  Company Number: None

PATIENT
  Age: 79 Year
  Sex: Male

DRUGS (11)
  1. NIFEDIPINE. [Concomitant]
     Active Substance: NIFEDIPINE
  2. CARVEDIOLOL, 3.125MG AUROBINDO [Concomitant]
     Active Substance: CARVEDILOL
  3. ASA 325MG [Concomitant]
  4. IRON [Concomitant]
     Active Substance: IRON
  5. LATANOPROST. [Concomitant]
     Active Substance: LATANOPROST
  6. AMIODARONE [Suspect]
     Active Substance: AMIODARONE
     Indication: VASCULAR GRAFT
     Dosage: ?          QUANTITY:1 TABLET(S);?
     Route: 048
  7. TEMAZEPAM. [Concomitant]
     Active Substance: TEMAZEPAM
  8. CYMBALTA [Concomitant]
     Active Substance: DULOXETINE HYDROCHLORIDE
  9. FOLIC ACID. [Concomitant]
     Active Substance: FOLIC ACID
  10. ACETAMINOPHEN PM [Concomitant]
     Active Substance: ACETAMINOPHEN\DIPHENHYDRAMINE HYDROCHLORIDE
  11. LORAZEPAM. [Concomitant]
     Active Substance: LORAZEPAM

REACTIONS (6)
  - Fall [None]
  - Gait inability [None]
  - Renal failure [None]
  - Tremor [None]
  - Pulmonary oedema [None]
  - Dialysis [None]

NARRATIVE: CASE EVENT DATE: 20190111
